FAERS Safety Report 4519456-9 (Version None)
Quarter: 2004Q4

REPORT INFORMATION
  Report Type: 
  Country: None (occurrence: None)
  Receive Date: 20041202
  Receipt Date: 20041116
  Transmission Date: 20050328
  Serious: Yes (Disabling, Other)
  Sender: FDA-Public Use
  Company Number: S04-SAF-07886-01

PATIENT
  Age: 59 Year
  Sex: Male
  Weight: 62 kg

DRUGS (4)
  1. CITALOPRAM HYDROBROMIDE [Suspect]
     Indication: GENERALISED ANXIETY DISORDER
     Dosage: 20 MG QD PO
     Route: 048
     Dates: start: 20030701, end: 20041015
  2. CITALOPRAM HYDROBROMIDE [Suspect]
     Indication: MAJOR DEPRESSION
     Dosage: 20 MG QD PO
     Route: 048
     Dates: start: 20030701, end: 20041015
  3. LEXOTAN               (BROMAZEPAM) [Concomitant]
  4. INDERAL [Concomitant]

REACTIONS (1)
  - ANHIDROSIS [None]
